FAERS Safety Report 18860920 (Version 4)
Quarter: 2021Q1

REPORT INFORMATION
  Report Type: Spontaneous
  Country: JP (occurrence: JP)
  Receive Date: 20210208
  Receipt Date: 20210315
  Transmission Date: 20210420
  Serious: Yes (Death, Other)
  Sender: FDA-Public Use
  Company Number: JP-009507513-2102JPN002280

PATIENT
  Age: 91 Year
  Sex: Female
  Weight: 54 kg

DRUGS (4)
  1. FIDAXOMICIN [Suspect]
     Active Substance: FIDAXOMICIN
     Indication: PSEUDOMEMBRANOUS COLITIS
     Dosage: 200 MG, UNKNOWN FREQ.
     Route: 048
     Dates: start: 20210123, end: 20210201
  2. CEFTRIAXONE SODIUM. [Concomitant]
     Active Substance: CEFTRIAXONE SODIUM
     Indication: URINARY TRACT INFECTION
     Dosage: UNK UNK, ONLY ONCE
     Route: 065
     Dates: start: 20210113
  3. MEROPENEM. [Concomitant]
     Active Substance: MEROPENEM
     Indication: URINARY TRACT INFECTION
     Route: 041
     Dates: start: 20210113, end: 20210122
  4. NEXIUM [Concomitant]
     Active Substance: ESOMEPRAZOLE MAGNESIUM
     Indication: THALAMUS HAEMORRHAGE
     Dosage: 20 MILLIGRAM, QD
     Route: 048
     Dates: start: 20210114, end: 20210201

REACTIONS (2)
  - Sepsis [Fatal]
  - Staphylococcal infection [Fatal]

NARRATIVE: CASE EVENT DATE: 20210129
